FAERS Safety Report 7314321-6 (Version None)
Quarter: 2011Q1

REPORT INFORMATION
  Report Type: 
  Country: None (occurrence: None)
  Receive Date: 20110225
  Receipt Date: 20100809
  Transmission Date: 20110831
  Serious: No
  Sender: FDA-Public Use
  Company Number: US-MYLANLABS-2010S1013106

PATIENT
  Age: 41 Year
  Sex: Female
  Weight: 84.82 kg

DRUGS (7)
  1. LYRICA [Concomitant]
  2. AMNESTEEM [Suspect]
     Indication: ACNE
     Route: 048
     Dates: start: 20100303, end: 20100720
  3. PROPRANOLOL [Concomitant]
  4. AMOXICILLIN [Suspect]
     Indication: TOOTH ABSCESS
     Dates: start: 20100601
  5. ESTRADIOL [Concomitant]
  6. NEXIUM [Concomitant]
  7. CYMBALTA [Concomitant]

REACTIONS (3)
  - DIARRHOEA [None]
  - NAUSEA [None]
  - WEIGHT DECREASED [None]
